FAERS Safety Report 21299030 (Version 2)
Quarter: 2022Q3

REPORT INFORMATION
  Report Type: Spontaneous
  Country: JP (occurrence: JP)
  Receive Date: 20220906
  Receipt Date: 20220919
  Transmission Date: 20221027
  Serious: Yes (Life-Threatening, Hospitalization)
  Sender: FDA-Public Use
  Company Number: JP-TEVA-2022-JP-2070326

PATIENT
  Age: 66 Year
  Sex: Male

DRUGS (4)
  1. PREDNISOLONE [Suspect]
     Active Substance: PREDNISOLONE
     Indication: Castleman^s disease
     Dosage: 20 MG
     Route: 048
  2. CYCLOSPORINE [Suspect]
     Active Substance: CYCLOSPORINE
     Indication: Castleman^s disease
     Dosage: 100 MILLIGRAM DAILY;
     Route: 048
  3. SARILUMAB [Suspect]
     Active Substance: SARILUMAB
     Indication: Castleman^s disease
     Dosage: 200 MG
     Route: 058
  4. PREDNISOLONE [Suspect]
     Active Substance: PREDNISOLONE
     Indication: Castleman^s disease
     Dosage: 50 MILLIGRAM DAILY;
     Route: 042

REACTIONS (1)
  - Acute respiratory distress syndrome [Unknown]
